FAERS Safety Report 4335851-5 (Version None)
Quarter: 2004Q2

REPORT INFORMATION
  Report Type: 
  Country: None (occurrence: None)
  Receive Date: 20040406
  Receipt Date: 20040324
  Transmission Date: 20050107
  Serious: Yes (Other)
  Sender: FDA-Public Use
  Company Number: 2004020370

PATIENT
  Age: 36 Year
  Sex: Male

DRUGS (5)
  1. PHENYTOIN [Suspect]
     Indication: CONVULSION
     Dosage: 400 MG (QD), ORAL
     Route: 048
  2. THERAPEUTIC RADIOPHARMACEUTICALS (THERAPEUTIC RADIOPHARMACEUTICALS) [Suspect]
     Indication: ILL-DEFINED DISORDER
  3. IFOSFAMIDE [Suspect]
     Indication: ILL-DEFINED DISORDER
  4. MITOMYCIN [Concomitant]
     Indication: ILL-DEFINED DISORDER
  5. CISPLATIN [Suspect]
     Indication: ILL-DEFINED DISORDER

REACTIONS (2)
  - ERYTHEMA MULTIFORME [None]
  - FEBRILE NEUTROPENIA [None]
